FAERS Safety Report 6912176-2 (Version None)
Quarter: 2010Q3

REPORT INFORMATION
  Report Type: 
  Country: None (occurrence: None)
  Receive Date: 20100806
  Receipt Date: 20080116
  Transmission Date: 20110219
  Serious: No
  Sender: FDA-Public Use
  Company Number: US-PFIZER INC-2008002132

PATIENT
  Sex: Male

DRUGS (12)
  1. DETROL LA [Suspect]
     Indication: BLADDER DISORDER
     Dates: start: 20061001
  2. GABAPENTIN [Concomitant]
  3. HYDROCODONE BITARTRATE [Concomitant]
  4. LANTUS [Concomitant]
  5. METOCLOPRAMIDE [Concomitant]
  6. NEXIUM [Concomitant]
  7. NOVOLOG [Concomitant]
  8. VERAPAMIL [Concomitant]
  9. PROMETHAZINE [Concomitant]
  10. AMBIEN [Concomitant]
  11. CLONIDINE [Concomitant]
  12. BUPROPION HCL [Concomitant]

REACTIONS (2)
  - DRUG INEFFECTIVE [None]
  - DRUG PRESCRIBING ERROR [None]
